FAERS Safety Report 7476531-7 (Version None)
Quarter: 2011Q2

REPORT INFORMATION
  Report Type: 
  Country: None (occurrence: None)
  Receive Date: 20110510
  Receipt Date: 20110510
  Transmission Date: 20111010
  Serious: Yes (Life-Threatening, Other)
  Sender: FDA-Public Use
  Company Number: None

PATIENT
  Age: 62 Year
  Sex: Female
  Weight: 48.9885 kg

DRUGS (1)
  1. CHANTIX [Suspect]
     Indication: SMOKING CESSATION THERAPY
     Dosage: 0.5 DAILY AT BEDTIME PO
     Route: 048
     Dates: start: 20091009, end: 20100415

REACTIONS (4)
  - ABNORMAL DREAMS [None]
  - SLEEP DISORDER [None]
  - DEPRESSION [None]
  - FEELINGS OF WORTHLESSNESS [None]
